FAERS Safety Report 4430706-X (Version None)
Quarter: 2004Q3

REPORT INFORMATION
  Report Type: 
  Country: None (occurrence: None)
  Receive Date: 20040818
  Receipt Date: 20040806
  Transmission Date: 20050211
  Serious: Yes (Other)
  Sender: FDA-Public Use
  Company Number: GB-2004-029546

PATIENT

DRUGS (2)
  1. FLUDARABINE(FLUDARABINE PHOSPHATE) N/A [Suspect]
  2. CYCLOPHOSPHAMIDE [Suspect]

REACTIONS (1)
  - LICHEN PLANUS [None]
